FAERS Safety Report 11551690 (Version 1)
Quarter: 2015Q3

REPORT INFORMATION
  Report Type: Spontaneous
  Country: US (occurrence: US)
  Receive Date: 20150903
  Receipt Date: 20150903
  Transmission Date: 20151125
  Serious: No
  Sender: FDA-Public Use
  Company Number: US-ELI_LILLY_AND_COMPANY-US200802001180

PATIENT
  Sex: Female

DRUGS (19)
  1. HUMALOG MIX75/25 [Suspect]
     Active Substance: INSULIN LISPRO
  2. HUMALOG MIX75/25 [Suspect]
     Active Substance: INSULIN LISPRO
  3. HUMALOG MIX75/25 [Suspect]
     Active Substance: INSULIN LISPRO
  4. HUMALOG MIX75/25 [Suspect]
     Active Substance: INSULIN LISPRO
  5. HUMALOG MIX75/25 [Suspect]
     Active Substance: INSULIN LISPRO
  6. HUMALOG MIX75/25 [Suspect]
     Active Substance: INSULIN LISPRO
  7. HUMALOG MIX75/25 [Suspect]
     Active Substance: INSULIN LISPRO
  8. HUMALOG MIX75/25 [Suspect]
     Active Substance: INSULIN LISPRO
  9. HUMALOG MIX75/25 [Suspect]
     Active Substance: INSULIN LISPRO
  10. HUMALOG MIX75/25 [Suspect]
     Active Substance: INSULIN LISPRO
  11. HUMALOG MIX75/25 [Suspect]
     Active Substance: INSULIN LISPRO
  12. HUMALOG MIX75/25 [Suspect]
     Active Substance: INSULIN LISPRO
  13. HUMALOG MIX75/25 [Suspect]
     Active Substance: INSULIN LISPRO
  14. HUMALOG MIX75/25 [Suspect]
     Active Substance: INSULIN LISPRO
  15. HUMALOG MIX75/25 [Suspect]
     Active Substance: INSULIN LISPRO
  16. HUMALOG MIX75/25 [Suspect]
     Active Substance: INSULIN LISPRO
  17. HUMALOG MIX75/25 [Suspect]
     Active Substance: INSULIN LISPRO
  18. HUMALOG MIX75/25 [Suspect]
     Active Substance: INSULIN LISPRO
  19. HUMALOG MIX75/25 [Suspect]
     Active Substance: INSULIN LISPRO

REACTIONS (4)
  - Feeling abnormal [Unknown]
  - Pain [Unknown]
  - Drug ineffective [Recovered/Resolved]
  - Feeling abnormal [Recovered/Resolved]

NARRATIVE: CASE EVENT DATE: 2007
